FAERS Safety Report 4367019-0 (Version None)
Quarter: 2004Q2

REPORT INFORMATION
  Report Type: 
  Country: None (occurrence: None)
  Receive Date: 20040524
  Receipt Date: 20040518
  Transmission Date: 20050107
  Serious: Yes (Other)
  Sender: FDA-Public Use
  Company Number: STA-AE-04-MTX-198

PATIENT
  Age: 88 Year
  Sex: Female

DRUGS (9)
  1. METHOTREXATE [Suspect]
     Indication: RHEUMATOID ARTHRITIS
     Dosage: 5 MG 1X PER 1 WK, ORAL
     Route: 048
     Dates: start: 20020214
  2. FOLIC ACID [Concomitant]
  3. LASIX [Concomitant]
  4. AMIODARONE HYDROCHLORIDE [Concomitant]
  5. K-DUR 10 [Concomitant]
  6. COUMADIN [Concomitant]
  7. TOPROL-XL [Concomitant]
  8. ACCUPRIL [Concomitant]
  9. PREMARIN [Concomitant]

REACTIONS (3)
  - ANAEMIA [None]
  - MULTIPLE MYELOMA [None]
  - PARAPROTEINAEMIA [None]
